FAERS Safety Report 15814778 (Version 1)
Quarter: 2019Q1

REPORT INFORMATION
  Report Type: Spontaneous
  Country: IT (occurrence: IT)
  Receive Date: 20190111
  Receipt Date: 20190111
  Transmission Date: 20190417
  Serious: Yes (Hospitalization)
  Sender: FDA-Public Use
  Company Number: IT-MYLANLABS-2019M1002127

PATIENT
  Age: 60 Year
  Sex: Female

DRUGS (2)
  1. DEPAKIN [Suspect]
     Active Substance: VALPROATE SODIUM
     Indication: PSYCHOTIC DISORDER
     Route: 048
  2. CLOZAPINE MYLAN [Suspect]
     Active Substance: CLOZAPINE
     Indication: PSYCHOTIC DISORDER
     Dosage: UNK
     Route: 048

REACTIONS (1)
  - Loss of consciousness [Unknown]

NARRATIVE: CASE EVENT DATE: 20180127
